FAERS Safety Report 8242543-9 (Version None)
Quarter: 2012Q1

REPORT INFORMATION
  Report Type: 
  Country: None (occurrence: None)
  Receive Date: 20120329
  Receipt Date: 20120321
  Transmission Date: 20120608
  Serious: Yes (Other)
  Sender: FDA-Public Use
  Company Number: PHHY2011AU098268

PATIENT
  Sex: Female

DRUGS (1)
  1. GILENYA [Suspect]
     Dosage: UNK UKN, UNK
     Dates: start: 20110801, end: 20110901

REACTIONS (3)
  - SQUAMOUS CELL CARCINOMA [None]
  - ACTINIC KERATOSIS [None]
  - SKIN LESION [None]
